FAERS Safety Report 5151774-6 (Version None)
Quarter: 2006Q4

REPORT INFORMATION
  Report Type: 
  Country: None (occurrence: None)
  Receive Date: 20061107
  Receipt Date: 20061023
  Transmission Date: 20070319
  Serious: Yes (Death)
  Sender: FDA-Public Use
  Company Number: B0443248A

PATIENT
  Age: 41 Year

DRUGS (3)
  1. WELLBUTRIN [Suspect]
     Dosage: UNK / UNKNOWN / ORAL
     Route: 048
  2. LAMICITAL (FORMULATION UNKNOWN) (LAMOTRIGINE) [Suspect]
     Dosage: UNK / UNKNOWN/ ORAL
     Route: 048
  3. SERTRALINE HCL [Suspect]
     Dosage: UNK / UNKNOWN/ ORAL
     Route: 048

REACTIONS (1)
  - INTENTIONAL DRUG MISUSE [None]
